FAERS Safety Report 8793807 (Version 2)
Quarter: 2012Q4

REPORT INFORMATION
  Report Type: Report from Study
  Country: JP (occurrence: JP)
  Receive Date: 20120917
  Receipt Date: 20121210
  Transmission Date: 20130627
  Serious: Yes (Other)
  Sender: FDA-Public Use
  Company Number: JP-VERTEX PHARMACEUTICAL INC.-AE-2012-011355

PATIENT
  Age: 53 Year
  Sex: Male

DRUGS (10)
  1. VX-950 (TELAPREVIR) [Suspect]
     Indication: CHRONIC HEPATITIS C
     Dosage: 2250 mg, qd
     Route: 048
     Dates: start: 20120526, end: 20120528
  2. VX-950 (TELAPREVIR) [Suspect]
     Dosage: 1500 mg, qd
     Route: 048
     Dates: start: 20120529, end: 20120815
  3. RIBAVIRIN [Suspect]
     Indication: CHRONIC HEPATITIS C
     Dosage: 1000 mg, qd
     Route: 048
     Dates: start: 20120526, end: 20121031
  4. PEGINTERFERON ALFA-2B [Concomitant]
     Dosage: 1.5 ?g/kg, qw
     Route: 058
     Dates: start: 20120526, end: 20121031
  5. CLARITIN REDITABS [Concomitant]
     Dosage: 10 mg, qd
     Route: 048
  6. LIVALO [Concomitant]
     Dosage: 2 mg, qd
     Route: 048
  7. EPADEL-S [Concomitant]
     Dosage: 1800 mg, qd
     Route: 048
  8. FEROTYM [Concomitant]
     Dosage: 100 mg, qd
     Route: 048
  9. SEFTAC [Concomitant]
     Route: 048
  10. SALOBEL [Concomitant]
     Dosage: UNK
     Route: 048

REACTIONS (4)
  - Rash [Recovered/Resolved]
  - Anaemia [Not Recovered/Not Resolved]
  - Anaemia [Not Recovered/Not Resolved]
  - Anaemia [Not Recovered/Not Resolved]
